FAERS Safety Report 6947169-2 (Version None)
Quarter: 2010Q3

REPORT INFORMATION
  Report Type: 
  Country: None (occurrence: None)
  Receive Date: 20100825
  Receipt Date: 20100813
  Transmission Date: 20110219
  Serious: Yes (Hospitalization, Other)
  Sender: FDA-Public Use
  Company Number: DSJ-2010-13678

PATIENT
  Age: 62 Year
  Sex: Male

DRUGS (2)
  1. BENICAR [Suspect]
     Indication: HYPERTENSION
     Dosage: 40 MG (40 MG, 1 IN 1 D), PER ORAL
     Route: 048
     Dates: start: 20100201, end: 20100701
  2. ACETYLSALICYLIC ACID SRT [Concomitant]

REACTIONS (3)
  - CATHETER PLACEMENT [None]
  - DIZZINESS [None]
  - DRUG INEFFECTIVE [None]
